FAERS Safety Report 9807651 (Version 2)
Quarter: 2014Q2

REPORT INFORMATION
  Report Type: Spontaneous
  Country: US (occurrence: US)
  Receive Date: 20140110
  Receipt Date: 20140414
  Transmission Date: 20141212
  Serious: No
  Sender: FDA-Public Use
  Company Number: US-009507513-1401USA001160

PATIENT
  Age: 69 Year
  Sex: Female

DRUGS (5)
  1. ZIOPTAN [Suspect]
     Indication: GLAUCOMA
     Dosage: UNK
     Route: 047
     Dates: start: 20130404
  2. COSOPT PF [Suspect]
     Indication: OPEN ANGLE GLAUCOMA
     Dosage: 2 GTT, BID
     Route: 047
     Dates: start: 20130404
  3. RESTASIS [Concomitant]
     Dosage: UNK
     Route: 047
     Dates: start: 20130404
  4. CRESTOR [Concomitant]
     Dosage: UNK
  5. PILOCARPINE [Concomitant]

REACTIONS (3)
  - Dry mouth [Not Recovered/Not Resolved]
  - Visual impairment [Not Recovered/Not Resolved]
  - Incorrect product storage [Unknown]
